FAERS Safety Report 5633152-6 (Version None)
Quarter: 2008Q1

REPORT INFORMATION
  Report Type: 
  Country: None (occurrence: None)
  Receive Date: 20080221
  Receipt Date: 20070410
  Transmission Date: 20080703
  Serious: Yes (Hospitalization, Other)
  Sender: FDA-Public Use
  Company Number: US-ASTRAZENECA-2007UW02074

PATIENT
  Age: 7509 Day
  Sex: Female
  Weight: 95.9 kg

DRUGS (3)
  1. SEROQUEL [Suspect]
     Indication: SCHIZOPHRENIA
     Dosage: 100 MG - 500 MG
     Route: 048
     Dates: start: 20010701, end: 20060301
  2. RISPERDAL [Concomitant]
     Route: 048
     Dates: start: 20000101
  3. TRILEPTAL [Concomitant]
     Route: 048
     Dates: start: 20060101

REACTIONS (23)
  - ABDOMINAL PAIN [None]
  - BACK PAIN [None]
  - CHEST PAIN [None]
  - CONVULSION [None]
  - DEHYDRATION [None]
  - DIABETES MELLITUS INADEQUATE CONTROL [None]
  - DYSPNOEA [None]
  - DYSURIA [None]
  - EYE IRRITATION [None]
  - HYPOGLYCAEMIA [None]
  - MENTAL STATUS CHANGES [None]
  - NAUSEA [None]
  - OEDEMA PERIPHERAL [None]
  - PAIN [None]
  - PAIN IN EXTREMITY [None]
  - PELVIC PAIN [None]
  - POLYCYSTIC OVARIES [None]
  - PREMATURE LABOUR [None]
  - PYREXIA [None]
  - SLEEP DISORDER [None]
  - TYPE 2 DIABETES MELLITUS [None]
  - VAGINAL HAEMORRHAGE [None]
  - VOMITING [None]
